FAERS Safety Report 11975403 (Version 3)
Quarter: 2016Q1

REPORT INFORMATION
  Report Type: Report from Study
  Country: US (occurrence: US)
  Receive Date: 20160128
  Receipt Date: 20160318
  Transmission Date: 20160526
  Serious: Yes (Other)
  Sender: FDA-Public Use
  Company Number: US-AMGEN-USASL2016007509

PATIENT
  Age: 71 Year
  Sex: Female

DRUGS (2)
  1. VITAMIN D                          /00107901/ [Concomitant]
     Active Substance: ERGOCALCIFEROL
  2. PROLIA [Suspect]
     Active Substance: DENOSUMAB
     Indication: PRODUCT USED FOR UNKNOWN INDICATION
     Dosage: UNK
     Route: 065
     Dates: start: 2014

REACTIONS (7)
  - Bone density abnormal [Unknown]
  - Skin disorder [Unknown]
  - Acne [Unknown]
  - Nephrolithiasis [Unknown]
  - Pruritus [Unknown]
  - Injection site pain [Unknown]
  - Erythema [Unknown]

NARRATIVE: CASE EVENT DATE: 201510
